FAERS Safety Report 8014798-7 (Version None)
Quarter: 2011Q4

REPORT INFORMATION
  Report Type: 
  Country: None (occurrence: None)
  Receive Date: 20111229
  Receipt Date: 20111228
  Transmission Date: 20120403
  Serious: Yes (Other)
  Sender: FDA-Public Use
  Company Number: US-PFIZER INC-2011311880

PATIENT

DRUGS (2)
  1. PACLITAXEL [Suspect]
  2. TEMSIROLIMUS [Suspect]
     Dosage: UNK

REACTIONS (2)
  - INTERCEPTED DRUG DISPENSING ERROR [None]
  - INJURY [None]
